FAERS Safety Report 13119468 (Version 1)
Quarter: 2017Q1

REPORT INFORMATION
  Report Type: Spontaneous
  Country: US (occurrence: US)
  Receive Date: 20170116
  Receipt Date: 20170116
  Transmission Date: 20170428
  Serious: No
  Sender: FDA-Public Use
  Company Number: US-TAIHO ONCOLOGY INC-EU-2017-00033

PATIENT
  Sex: Female

DRUGS (14)
  1. CELEXA [Concomitant]
     Active Substance: CITALOPRAM HYDROBROMIDE
     Dosage: NI
  2. MACROBID [Concomitant]
     Active Substance: NITROFURANTOIN\NITROFURANTOIN MONOHYDRATE
     Dosage: NI
  3. VALIUM [Concomitant]
     Active Substance: DIAZEPAM
     Dosage: NI
  4. VERAPAMIL [Concomitant]
     Active Substance: VERAPAMIL HYDROCHLORIDE
     Dosage: NI
  5. LONSURF [Suspect]
     Active Substance: TIPIRACIL HYDROCHLORIDE\TRIFLURIDINE
     Indication: COLON CANCER
     Route: 048
     Dates: start: 2016, end: 20161231
  6. STIVARGA [Concomitant]
     Active Substance: REGORAFENIB
     Dosage: NI
  7. PROVIGIL [Concomitant]
     Active Substance: MODAFINIL
     Dosage: NI
  8. LABETALOL [Concomitant]
     Active Substance: LABETALOL\LABETALOL HYDROCHLORIDE
     Dosage: NI
  9. NORCO [Concomitant]
     Active Substance: ACETAMINOPHEN\HYDROCODONE BITARTRATE
     Dosage: NI
  10. GABAPENTIN. [Concomitant]
     Active Substance: GABAPENTIN
     Dosage: NI
  11. PYRIDOXINE [Concomitant]
     Active Substance: PYRIDOXINE
     Dosage: NI
  12. PYRIDIUM [Concomitant]
     Active Substance: PHENAZOPYRIDINE
     Dosage: NI
  13. IBUPROFEN. [Concomitant]
     Active Substance: IBUPROFEN
     Dosage: NI
  14. LACTULOSE. [Concomitant]
     Active Substance: LACTULOSE
     Dosage: NI

REACTIONS (2)
  - Muscular weakness [Unknown]
  - Pain [Unknown]

NARRATIVE: CASE EVENT DATE: 2016
